FAERS Safety Report 21349753 (Version 1)
Quarter: 2022Q3

REPORT INFORMATION
  Report Type: Spontaneous
  Country: US (occurrence: US)
  Receive Date: 20220919
  Receipt Date: 20220919
  Transmission Date: 20221026
  Serious: No
  Sender: FDA-Public Use
  Company Number: US-Blueprint Medicines Corporation-426

PATIENT
  Sex: Male

DRUGS (1)
  1. AYVAKIT [Suspect]
     Active Substance: AVAPRITINIB
     Indication: Gastrointestinal stromal tumour
     Route: 048
     Dates: start: 20210701

REACTIONS (5)
  - Platelet count decreased [Recovered/Resolved]
  - Blood calcium decreased [Unknown]
  - Tooth disorder [Unknown]
  - Gingival recession [Unknown]
  - Teeth brittle [Unknown]
